FAERS Safety Report 23603233 (Version 8)
Quarter: 2024Q4

REPORT INFORMATION
  Report Type: Other
  Country: CA (occurrence: CA)
  Receive Date: 20240307
  Receipt Date: 20241008
  Transmission Date: 20250115
  Serious: No
  Sender: TOLMAR
  Company Number: CA-TOLMAR, INC.-24CA046848

PATIENT
  Age: 64 Year
  Sex: Female

DRUGS (10)
  1. ELIGARD [Suspect]
     Active Substance: LEUPROLIDE ACETATE
     Indication: Ovarian cancer
     Dosage: 7.5 MILLIGRAM, Q 1 MONTH
     Route: 058
     Dates: start: 20240117
  2. ELIGARD [Suspect]
     Active Substance: LEUPROLIDE ACETATE
     Dosage: 7.5 MILLIGRAM, Q 1 MONTH
     Route: 058
     Dates: start: 20240214
  3. ELIGARD [Suspect]
     Active Substance: LEUPROLIDE ACETATE
     Dosage: 7.5 MILLIGRAM, Q 1 MONTH
     Route: 058
     Dates: start: 20240410
  4. ELIGARD [Suspect]
     Active Substance: LEUPROLIDE ACETATE
     Dosage: 7.5 MILLIGRAM, Q 1 MONTH
     Route: 058
     Dates: start: 20240508
  5. ELIGARD [Suspect]
     Active Substance: LEUPROLIDE ACETATE
     Dosage: 7.5 MILLIGRAM, Q 1 MONTH
     Route: 058
     Dates: start: 20240605
  6. ELIGARD [Suspect]
     Active Substance: LEUPROLIDE ACETATE
     Dosage: 7.5 MILLIGRAM, Q 1 MONTH
     Route: 058
     Dates: start: 20240703
  7. ELIGARD [Suspect]
     Active Substance: LEUPROLIDE ACETATE
     Dosage: 7.5 MILLIGRAM, Q 1 MONTH
     Route: 058
     Dates: start: 20240731
  8. ELIGARD [Suspect]
     Active Substance: LEUPROLIDE ACETATE
     Dosage: 7.5 MILLIGRAM, Q 1 MONTH
     Route: 058
     Dates: start: 20240827
  9. ELIGARD [Suspect]
     Active Substance: LEUPROLIDE ACETATE
     Dosage: 7.5 MILLIGRAM, Q 1 MONTH
     Route: 058
     Dates: start: 20240924
  10. ELIGARD [Suspect]
     Active Substance: LEUPROLIDE ACETATE
     Indication: Ovarian cancer
     Dosage: UNK

REACTIONS (3)
  - Off label use [Unknown]
  - Oedema peripheral [Unknown]
  - Erythema [Unknown]

NARRATIVE: CASE EVENT DATE: 20240117
